FAERS Safety Report 17775555 (Version 1)
Quarter: 2020Q2

REPORT INFORMATION
  Report Type: Spontaneous
  Country: US (occurrence: US)
  Receive Date: 20200513
  Receipt Date: 20200513
  Transmission Date: 20200714
  Serious: Yes (Disabling)
  Sender: FDA-Public Use
  Company Number: None

PATIENT
  Age: 9 Year
  Sex: Male

DRUGS (1)
  1. OSELTAMIVIR [Suspect]
     Active Substance: OSELTAMIVIR
     Indication: INFLUENZA
     Route: 048
     Dates: start: 20190202, end: 20190206

REACTIONS (5)
  - Dysgraphia [None]
  - Reading disorder [None]
  - Obsessive-compulsive disorder [None]
  - Loss of personal independence in daily activities [None]
  - Tic [None]

NARRATIVE: CASE EVENT DATE: 20190202
